FAERS Safety Report 9647198 (Version 2)
Quarter: 2014Q2

REPORT INFORMATION
  Report Type: Spontaneous
  Country: US (occurrence: US)
  Receive Date: 20131027
  Receipt Date: 20140506
  Transmission Date: 20141212
  Serious: Yes (Death, Other)
  Sender: FDA-Public Use
  Company Number: US-NAPPMUNDI-USA-2013-0106207

PATIENT
  Sex: Female

DRUGS (1)
  1. OXYCODONE HYDROCHLORIDE (SIMILAR TO NDA 22-272) [Suspect]
     Indication: INJURY
     Dosage: UNK
     Route: 048
     Dates: start: 2004

REACTIONS (3)
  - Accidental overdose [Unknown]
  - Drug dependence [Unknown]
  - Obesity [Fatal]
